FAERS Safety Report 17685883 (Version 1)
Quarter: 2020Q2

REPORT INFORMATION
  Report Type: Spontaneous
  Country: US (occurrence: US)
  Receive Date: 20200417
  Receipt Date: 20200417
  Transmission Date: 20200714
  Serious: No
  Sender: FDA-Public Use
  Company Number: None

PATIENT
  Age: 75 Year
  Sex: Male
  Weight: 65 kg

DRUGS (1)
  1. APIXABAN (APIXABAN 5MG TAB) [Suspect]
     Active Substance: APIXABAN
     Dates: start: 20181228, end: 20190401

REACTIONS (5)
  - Melaena [None]
  - Gastric haemorrhage [None]
  - Asthenia [None]
  - Haemoglobin decreased [None]
  - Therapy interrupted [None]

NARRATIVE: CASE EVENT DATE: 20190324
